FAERS Safety Report 13944351 (Version 1)
Quarter: 2017Q3

REPORT INFORMATION
  Report Type: Spontaneous
  Country: US (occurrence: US)
  Receive Date: 20170907
  Receipt Date: 20170907
  Transmission Date: 20171128
  Serious: No
  Sender: FDA-Public Use
  Company Number: US-ROCHE-1283746

PATIENT
  Sex: Male

DRUGS (1)
  1. RITUXAN [Suspect]
     Active Substance: RITUXIMAB
     Indication: PRODUCT USED FOR UNKNOWN INDICATION
     Route: 065

REACTIONS (8)
  - Back pain [Unknown]
  - Erythema [Unknown]
  - Motor dysfunction [Unknown]
  - Rash [Unknown]
  - Balance disorder [Unknown]
  - Tremor [Unknown]
  - Skin exfoliation [Unknown]
  - Vomiting [Unknown]
